FAERS Safety Report 19879838 (Version 1)
Quarter: 2021Q3

REPORT INFORMATION
  Report Type: Spontaneous
  Country: US (occurrence: US)
  Receive Date: 20210924
  Receipt Date: 20210924
  Transmission Date: 20211014
  Serious: No
  Sender: FDA-Public Use
  Company Number: US-JACOBUS PHARMACEUTICAL COMPANY, INC.-2118769

PATIENT
  Age: 52 Year
  Sex: Female

DRUGS (4)
  1. LATUDA [Concomitant]
     Active Substance: LURASIDONE HYDROCHLORIDE
  2. LITHIUM. [Concomitant]
     Active Substance: LITHIUM
  3. RUZURGI [Suspect]
     Active Substance: AMIFAMPRIDINE
     Indication: MYASTHENIC SYNDROME
     Route: 048
     Dates: start: 20190911
  4. AMITRIPTYLINE HYDROCHLORIDE. [Concomitant]
     Active Substance: AMITRIPTYLINE HYDROCHLORIDE

REACTIONS (2)
  - Dry mouth [Unknown]
  - Drug ineffective [Unknown]
